FAERS Safety Report 9604327 (Version 2)
Quarter: 2014Q1

REPORT INFORMATION
  Report Type: Report from Study
  Country: US (occurrence: US)
  Receive Date: 20131008
  Receipt Date: 20140130
  Transmission Date: 20141002
  Serious: Yes (Other)
  Sender: FDA-Public Use
  Company Number: PHEH2013US020793

PATIENT
  Age: 50 Year
  Sex: Male

DRUGS (37)
  1. GLEEVEC [Suspect]
     Indication: GRAFT VERSUS HOST DISEASE
     Dosage: UNK
  2. GLEEVEC [Suspect]
     Dosage: 200 MG, DAILY
     Route: 048
     Dates: start: 201309
  3. GLEEVEC [Suspect]
     Dosage: 100 MG, 2 TABLETS, DAILY
     Route: 048
  4. VALTREX [Concomitant]
     Dosage: 500 MG, BID
     Route: 048
  5. FLUCONAZOLE [Concomitant]
     Dosage: 200 MG, 1 TABLET, DAILY
     Route: 048
  6. SULFAMETHOXAZOLE [Concomitant]
     Dosage: 800 MG, UNK
  7. TRIMETHOPRIM [Concomitant]
     Dosage: 160 MG, THREE TIMES A WEEK FOR SEVEN DAYS
     Route: 048
  8. LEVAQUIN [Concomitant]
     Dosage: 250 MG, DAILY
     Route: 048
  9. AZITHROMYCIN [Concomitant]
     Dosage: 250 MG, THREE TIMES A WEEK
     Route: 048
  10. SINGULAIR [Concomitant]
     Dosage: 10 MG, DAILY
     Route: 048
  11. GENGRAF [Concomitant]
     Dosage: 25 MG, TWICE A DAY
     Route: 048
  12. PREDNISONE [Concomitant]
     Dosage: 5 MG, DAILY, FOR SEVEN DAYS
     Route: 048
  13. TRIAMCINOLONE ACETONIDE [Concomitant]
     Dosage: UNK UKN, APPLIED TO AFFECTED AREAS TWICE DAILY
     Route: 061
  14. RESTASIS [Concomitant]
     Dosage: 1 DRP, TWICE DAILY
  15. PREDNISOLONE ACETATE [Concomitant]
     Dosage: 1 DRP, IN BOTH EYES TWO TIMES A DAY
  16. NEXIUM [Concomitant]
     Dosage: 40 MG, DAILY
     Route: 048
  17. LEXAPRO [Concomitant]
     Dosage: 10 MG, DAILY
     Route: 048
  18. CIALIS [Concomitant]
     Dosage: 20 MG, AS NEEDED
     Route: 048
  19. ALBUTEROL [Concomitant]
     Dosage: 2 DF, TWICE A DAY
     Route: 055
  20. URSODIOL [Concomitant]
     Dosage: 300 MG, TID
     Route: 048
  21. MVI [Concomitant]
     Dosage: 1 DF, DAILY
     Route: 048
  22. REFRESH [Concomitant]
     Dosage: 1 DRP, IN BOTH EYES, OFTEN DAILY
  23. ERGOCALCIFEROL [Concomitant]
     Dosage: 1 DF, WEEKLY
  24. OSCAL [Concomitant]
     Dosage: 500 MG, DAILY
     Route: 048
  25. LOSARTAN [Concomitant]
     Dosage: 100 MG, DAILY
     Route: 048
  26. ZOLPIDEM [Concomitant]
     Indication: INSOMNIA
     Dosage: 10 MG, EVERY EVENING AT BED TIME
     Route: 048
  27. GABAPENTIN [Concomitant]
     Dosage: 400 MG, THREE TIMES AS DAY FOR SEVEN DAYS
     Route: 048
  28. TESTOSTERONE [Concomitant]
     Dosage: 200 MG/ML, EVERY OTHER WEEK
     Route: 030
  29. FLOVENT [Concomitant]
     Dosage: 200 UG, 2 PUFFS A A DAY
  30. LANTUS [Concomitant]
     Dosage: 100 U/ML, EVERY EVENING AT BED TIME
     Route: 058
  31. NOVOLOG [Concomitant]
     Dosage: 5 U, AT EACH MEAL
  32. COL RITE STOOL SOFTENER [Concomitant]
     Dosage: UNK UKN, AS NEEDED
  33. HYDROCODONE [Concomitant]
     Indication: PAIN
     Dosage: 5 MG, EVERY SIX HOURS
     Route: 048
  34. EPLERENONE [Concomitant]
     Dosage: 25 MG, DAILY
     Route: 048
  35. CARVEDILOL [Concomitant]
     Dosage: 1 DF, TWICE A DAY
     Route: 048
  36. CEPHALEXIN [Concomitant]
     Dosage: 500 MG, (FOUR CAPSULES)
     Route: 048
  37. PLAVIX [Concomitant]
     Dosage: UNK UKN, DAILY
     Route: 048

REACTIONS (1)
  - Cerebrovascular accident [Recovering/Resolving]
